FAERS Safety Report 22692201 (Version 2)
Quarter: 2023Q4

REPORT INFORMATION
  Report Type: Spontaneous
  Country: US (occurrence: US)
  Receive Date: 20230711
  Receipt Date: 20231020
  Transmission Date: 20240110
  Serious: Yes (Hospitalization, Other)
  Sender: FDA-Public Use
  Company Number: US-PFIZER INC-202300244003

PATIENT
  Age: 19 Year
  Sex: Female
  Weight: 92.08 kg

DRUGS (11)
  1. OXBRYTA [Suspect]
     Active Substance: VOXELOTOR
     Indication: Full blood count abnormal
     Dosage: 1500 MG, DAILY (3 PILLS OF 500MG PER PILL, EVERY MORNING DAILY BY MOUTH)
     Route: 048
  2. ALBUTEROL SULFATE [Concomitant]
     Active Substance: ALBUTEROL SULFATE
     Indication: Asthma
     Dosage: 2.5 MG, 4X/DAY
  3. AYGESTIN [Concomitant]
     Active Substance: NORETHINDRONE ACETATE
     Dosage: 5 MG, DAILY
  4. FLUTICASONE [Concomitant]
     Active Substance: FLUTICASONE
     Dosage: 50 UG, 2X/DAY
  5. FOLIC ACID [Concomitant]
     Active Substance: FOLIC ACID
     Indication: Iron deficiency
     Dosage: (1MG BY MOUTH ONCE A DAY)
     Route: 048
  6. HYDROXYUREA [Concomitant]
     Active Substance: HYDROXYUREA
     Indication: Red blood cell count abnormal
     Dosage: 1500 MG, 1X/DAY
     Route: 048
  7. HYDROXYUREA [Concomitant]
     Active Substance: HYDROXYUREA
     Dosage: (1200MG EVERY NIGHT ONCE A DAY BY MOUTH)
     Route: 048
     Dates: start: 2020
  8. MONTELUKAST [Concomitant]
     Active Substance: MONTELUKAST SODIUM
     Dosage: 10 MG, 1X/DAY
     Route: 048
  9. TOPAMAX [Concomitant]
     Active Substance: TOPIRAMATE
     Indication: Headache
     Dosage: (THINKS IT IS 5MG PILL BY MOUTH)
     Route: 048
     Dates: start: 2020
  10. CHOLECALCIFEROL [Concomitant]
     Active Substance: CHOLECALCIFEROL
     Dosage: 1.25 MG, MONTHLY
  11. ZYRTEC [Concomitant]
     Active Substance: CETIRIZINE HYDROCHLORIDE
     Indication: Sinus disorder
     Dosage: 10 MG, 1X/DAY
     Route: 048

REACTIONS (3)
  - Pain [Recovering/Resolving]
  - Sickle cell anaemia with crisis [Unknown]
  - Product dose omission issue [Unknown]
